FAERS Safety Report 4612737-X (Version None)
Quarter: 2005Q1

REPORT INFORMATION
  Report Type: 
  Country: None (occurrence: None)
  Receive Date: 20050318
  Receipt Date: 20041207
  Transmission Date: 20050727
  Serious: Yes (Disabling)
  Sender: FDA-Public Use
  Company Number: US-MERCK-0412USA00870

PATIENT
  Age: 77 Year
  Sex: Male
  Weight: 73 kg

DRUGS (21)
  1. ZETIA [Suspect]
     Indication: HYPERCHOLESTEROLAEMIA
     Route: 048
     Dates: start: 20031001, end: 20040615
  2. ZETIA [Suspect]
     Indication: HYPERLIPIDAEMIA
     Route: 048
     Dates: start: 20031001, end: 20040615
  3. OMEGA-3 [Concomitant]
     Route: 048
  4. NITROGLYCERIN [Concomitant]
     Route: 060
  5. VITAMINS (UNSPECIFIED) [Concomitant]
     Route: 048
  6. LORAZEPAM [Concomitant]
     Route: 048
  7. LISINOPRIL [Concomitant]
     Route: 048
  8. LATANOPROST [Concomitant]
     Route: 047
  9. IBUPROFEN [Concomitant]
     Route: 048
  10. VICODIN [Concomitant]
     Route: 048
  11. ALBUTEROL [Concomitant]
     Route: 055
  12. ADVAIR DISKUS 100/50 [Concomitant]
     Route: 055
  13. CARDIZEM [Concomitant]
     Route: 048
  14. WELLBUTRIN [Concomitant]
     Route: 065
  15. ASPIRIN [Concomitant]
     Route: 048
  16. ALPHAGAN [Concomitant]
     Route: 047
  17. PREDNISONE [Concomitant]
     Route: 048
  18. METAMUCIL-2 [Concomitant]
     Route: 065
  19. DETROL [Concomitant]
     Route: 048
  20. EFFEXOR [Concomitant]
     Route: 048
  21. ZANTAC [Concomitant]
     Route: 065

REACTIONS (8)
  - ASTHENIA [None]
  - BALANCE DISORDER [None]
  - ISCHAEMIA [None]
  - MICTURITION URGENCY [None]
  - MYOPATHY [None]
  - POLLAKIURIA [None]
  - SPINAL COLUMN STENOSIS [None]
  - SPONDYLOLYSIS [None]
